FAERS Safety Report 9257720 (Version 1)
Quarter: 2013Q2

REPORT INFORMATION
  Report Type: Spontaneous
  Country: US (occurrence: US)
  Receive Date: 20130426
  Receipt Date: 20130426
  Transmission Date: 20140414
  Serious: Yes (Hospitalization, Other)
  Sender: FDA-Public Use
  Company Number: US-JNJFOC-20130410590

PATIENT
  Age: 73 Year
  Sex: Male
  Weight: 63.5 kg

DRUGS (1)
  1. XARELTO [Suspect]
     Indication: DEEP VEIN THROMBOSIS
     Route: 048
     Dates: start: 201302

REACTIONS (7)
  - Hypotension [Recovered/Resolved]
  - Renal impairment [Recovered/Resolved]
  - Hallucination [Unknown]
  - Nerve compression [Not Recovered/Not Resolved]
  - Cellulitis [Recovering/Resolving]
  - Delusion [Unknown]
  - Delirium [Unknown]
